FAERS Safety Report 18178232 (Version 1)
Quarter: 2020Q3

REPORT INFORMATION
  Report Type: Spontaneous
  Country: JP (occurrence: JP)
  Receive Date: 20200821
  Receipt Date: 20200821
  Transmission Date: 20201103
  Serious: Yes (Other)
  Sender: FDA-Public Use
  Company Number: JP-SUN PHARMACEUTICAL INDUSTRIES LTD-2020RR-258289

PATIENT
  Age: 14 Year
  Sex: Female

DRUGS (5)
  1. INDOMETHACIN. [Suspect]
     Active Substance: INDOMETHACIN
     Indication: OPTIC NEUROPATHY
     Dosage: UNK
     Route: 065
  2. DECADRON [Suspect]
     Active Substance: DEXAMETHASONE
     Indication: OPTIC NEUROPATHY
     Dosage: 13.2 MILLIGRAM, UNK
     Route: 042
  3. DEXAMETHASONE. [Suspect]
     Active Substance: DEXAMETHASONE
     Indication: OPTIC NEUROPATHY
     Dosage: UNK
     Route: 048
  4. PARACETAMOL [Suspect]
     Active Substance: ACETAMINOPHEN
     Indication: OPTIC NEUROPATHY
     Dosage: UNK
     Route: 048
  5. RIZATRIPTAN. [Suspect]
     Active Substance: RIZATRIPTAN
     Indication: OPTIC NEUROPATHY
     Dosage: UNK
     Route: 065

REACTIONS (3)
  - Drug ineffective [Unknown]
  - Therapeutic product effect incomplete [Unknown]
  - Ocular hypertension [Recovering/Resolving]
